FAERS Safety Report 20924087 (Version 2)
Quarter: 2022Q2

REPORT INFORMATION
  Report Type: Spontaneous
  Country: JP (occurrence: JP)
  Receive Date: 20220607
  Receipt Date: 20220609
  Transmission Date: 20220721
  Serious: Yes (Other)
  Sender: FDA-Public Use
  Company Number: JP-NBI-J202208029BIPI

PATIENT
  Age: 81 Year
  Sex: Female

DRUGS (3)
  1. LINAGLIPTIN [Suspect]
     Active Substance: LINAGLIPTIN
     Indication: Product used for unknown indication
     Route: 048
  2. PREDONINE [Suspect]
     Active Substance: PREDNISOLONE
     Indication: Product used for unknown indication
     Route: 065
  3. PREDONINE [Concomitant]
     Active Substance: PREDNISOLONE
     Indication: Product used for unknown indication
     Route: 065

REACTIONS (3)
  - Pneumocystis jirovecii pneumonia [Unknown]
  - Platelet count decreased [Unknown]
  - Cytomegalovirus infection [Unknown]

NARRATIVE: CASE EVENT DATE: 20220603
